FAERS Safety Report 7907928-6 (Version None)
Quarter: 2011Q4

REPORT INFORMATION
  Report Type: 
  Country: None (occurrence: None)
  Receive Date: 20111110
  Receipt Date: 20111101
  Transmission Date: 20120403
  Serious: Yes (Other)
  Sender: FDA-Public Use
  Company Number: US-ASTRAZENECA-2011SE34221

PATIENT
  Age: 77 Year
  Sex: Female
  Weight: 72.6 kg

DRUGS (15)
  1. ESTRACE [Concomitant]
  2. NEXIUM [Suspect]
     Route: 048
  3. TOPROL-XL [Suspect]
     Route: 048
  4. ZANTAC [Concomitant]
  5. ZANTAC [Concomitant]
     Dosage: AT BEDTIME
  6. POTASSIUM CHLORIDE [Concomitant]
  7. NORVASC [Concomitant]
  8. TRAVATAN [Concomitant]
  9. MIACALCIN [Concomitant]
  10. NEXIUM [Suspect]
     Route: 048
  11. PHENAZOPYRIDINE HCL TAB [Concomitant]
  12. NEXIUM [Suspect]
     Route: 048
  13. ACCUPRIL [Concomitant]
  14. ESTRAL [Concomitant]
  15. NEXIUM [Suspect]
     Route: 048

REACTIONS (11)
  - EROSIVE OESOPHAGITIS [None]
  - GASTROOESOPHAGEAL REFLUX DISEASE [None]
  - DIVERTICULUM [None]
  - HIATUS HERNIA [None]
  - HYPERTENSION [None]
  - HYPOFIBRINOGENAEMIA [None]
  - GASTRIC POLYPS [None]
  - REGURGITATION [None]
  - INCORRECT DRUG ADMINISTRATION DURATION [None]
  - GASTRIC ULCER [None]
  - DYSPEPSIA [None]
